FAERS Safety Report 24412044 (Version 1)
Quarter: 2024Q4

REPORT INFORMATION
  Report Type: Spontaneous
  Country: US (occurrence: None)
  Receive Date: 20241007
  Receipt Date: 20241007
  Transmission Date: 20250115
  Serious: Yes (Other)
  Sender: Public
  Company Number: None

PATIENT
  Age: 71 Year
  Sex: Male
  Weight: 68.4 kg

DRUGS (17)
  1. VYVGART HYTRULO [Suspect]
     Active Substance: EFGARTIGIMOD ALFA\HYALURONIDASE-QVFC
     Indication: Chronic inflammatory demyelinating polyradiculoneuropathy
     Dosage: FREQUENCY : WEEKLY;?
     Route: 058
     Dates: start: 20240926
  2. GABAPENTIN [Concomitant]
     Active Substance: GABAPENTIN
  3. ATORVASTATIN [Concomitant]
     Active Substance: ATORVASTATIN
  4. ESOMEPRAZOLE MAGNESIUM [Concomitant]
     Active Substance: ESOMEPRAZOLE MAGNESIUM
  5. FLUOROMETHOLONE EYEDROPS [Concomitant]
  6. XDEMVY EYEDROPS [Concomitant]
  7. AREDS2 EYE VITAMIN [Concomitant]
  8. VITAMINS [Concomitant]
     Active Substance: VITAMINS
  9. FLORASTOR PROBIOTIC [Concomitant]
  10. VITAMIN D3 [Concomitant]
     Active Substance: CHOLECALCIFEROL
  11. BENADRYL [Concomitant]
     Active Substance: DIPHENHYDRAMINE HYDROCHLORIDE
  12. REFRESH EYEDROPS [Concomitant]
  13. RYALTRIS [Concomitant]
     Active Substance: MOMETASONE FUROATE MONOHYDRATE\OLOPATADINE HYDROCHLORIDE
  14. IBUPROFEN [Concomitant]
     Active Substance: IBUPROFEN
  15. TYLENOL [Concomitant]
     Active Substance: ACETAMINOPHEN
  16. MELATONIN [Concomitant]
     Active Substance: MELATONIN
  17. TRAMADOL [Concomitant]
     Active Substance: TRAMADOL

REACTIONS (3)
  - Injection site discolouration [None]
  - Injection site inflammation [None]
  - Injection site pruritus [None]

NARRATIVE: CASE EVENT DATE: 20241003
